FAERS Safety Report 10057946 (Version 1)
Quarter: 2014Q2

REPORT INFORMATION
  Report Type: Spontaneous
  Country: US (occurrence: None)
  Receive Date: 20140403
  Receipt Date: 20140403
  Transmission Date: 20141212
  Serious: Yes (Disabling, Other)
  Sender: FDA-Public Use
  Company Number: None

PATIENT
  Age: 44 Year
  Sex: Female
  Weight: 81.65 kg

DRUGS (4)
  1. BUDEPRION XL [Suspect]
     Indication: ATTENTION DEFICIT/HYPERACTIVITY DISORDER
     Dosage: 1 PILL
     Route: 048
     Dates: start: 20081220, end: 20090105
  2. BUDEPRION XL [Suspect]
     Indication: DEPRESSION
     Dosage: 1 PILL
     Route: 048
     Dates: start: 20081220, end: 20090105
  3. BUPROPION XL [Suspect]
     Indication: ATTENTION DEFICIT/HYPERACTIVITY DISORDER
     Dosage: 1 PILL
     Route: 048
     Dates: start: 20090330, end: 20090410
  4. BUPROPION XL [Suspect]
     Dosage: 1 PILL
     Route: 048
     Dates: start: 20090330, end: 20090410

REACTIONS (9)
  - Nausea [None]
  - Restless legs syndrome [None]
  - Headache [None]
  - Insomnia [None]
  - Drug ineffective [None]
  - Attention deficit/hyperactivity disorder [None]
  - Disease recurrence [None]
  - Product substitution issue [None]
  - Product quality issue [None]
